FAERS Safety Report 10074719 (Version 1)
Quarter: 2014Q2

REPORT INFORMATION
  Report Type: Spontaneous
  Country: US (occurrence: US)
  Receive Date: 20140414
  Receipt Date: 20140414
  Transmission Date: 20141212
  Serious: Yes (Hospitalization)
  Sender: FDA-Public Use
  Company Number: US-PFIZER INC-2014099282

PATIENT
  Age: 65 Year
  Sex: Female

DRUGS (2)
  1. SUTENT [Suspect]
     Indication: RENAL CANCER
     Dosage: 50 MG, DAILY
     Dates: start: 20140320, end: 20140402
  2. SUTENT [Suspect]
     Dosage: UNK

REACTIONS (3)
  - Dehydration [Recovered/Resolved]
  - Nausea [Recovered/Resolved]
  - Vomiting [Recovered/Resolved]
